FAERS Safety Report 16377830 (Version 1)
Quarter: 2019Q2

REPORT INFORMATION
  Report Type: Spontaneous
  Country: US (occurrence: US)
  Receive Date: 20190409
  Receipt Date: 20190409
  Transmission Date: 20190711
  Serious: Yes (Hospitalization)
  Sender: FDA-Public Use
  Company Number: None

PATIENT
  Age: 61 Year
  Sex: Female

DRUGS (5)
  1. APAP/CODEINE TABLETS 300-30MG [Concomitant]
     Dates: start: 20190318, end: 20190320
  2. NYSTOP POWDER 100000 [Concomitant]
     Dates: start: 20190214, end: 20190316
  3. CIMZIA [Suspect]
     Active Substance: CERTOLIZUMAB PEGOL
     Indication: PRODUCT USED FOR UNKNOWN INDICATION
     Dosage: ?          OTHER FREQUENCY:EVERY 4 WEEKS;?
     Route: 058
     Dates: start: 20180302
  4. HYDROXYCHLOROQUINE 200MGS TABLETS [Concomitant]
     Dates: start: 20190215
  5. DULOXETINE 60MG CAPSULE [Concomitant]
     Dates: start: 20190214

REACTIONS (3)
  - Fatigue [None]
  - Condition aggravated [None]
  - Musculoskeletal stiffness [None]

NARRATIVE: CASE EVENT DATE: 20190408
